FAERS Safety Report 8920051 (Version 1)
Quarter: 2012Q4

REPORT INFORMATION
  Report Type: 
  Country: US (occurrence: US)
  Receive Date: 20121121
  Receipt Date: 20121121
  Transmission Date: 20130627
  Serious: No
  Sender: FDA-Public Use
  Company Number: US-BRISTOL-MYERS SQUIBB COMPANY-16757395

PATIENT
  Age: 63 Year
  Sex: Male
  Weight: 79.36 kg

DRUGS (1)
  1. AVALIDE [Suspect]
     Indication: HYPERTENSION
     Dosage: Therapy on 2012

REACTIONS (1)
  - Erectile dysfunction [Unknown]
